FAERS Safety Report 10637968 (Version 1)
Quarter: 2014Q4

REPORT INFORMATION
  Report Type: Spontaneous
  Country: US (occurrence: None)
  Receive Date: 20141204
  Receipt Date: 20141204
  Transmission Date: 20150529
  Serious: Yes (Other)
  Sender: FDA-Public Use
  Company Number: COL_18644_2014

PATIENT
  Sex: Male

DRUGS (1)
  1. MENNAN SPEED STICK POWER FRESH ANTIPERSPIRANT [Suspect]
     Active Substance: ALUMINUM ZIRCONIUM TRICHLOROHYDREX GLY
     Indication: PRODUCT USED FOR UNKNOWN INDICATION
     Dosage: ONE SWIPE UNDER EACH ARM/DAILY/TOPICAL
     Route: 061
     Dates: end: 20141114

REACTIONS (4)
  - Purulence [None]
  - Application site pain [None]
  - Application site reaction [None]
  - Skin disorder [None]

NARRATIVE: CASE EVENT DATE: 20141114
